FAERS Safety Report 14410805 (Version 2)
Quarter: 2018Q2

REPORT INFORMATION
  Report Type: Spontaneous
  Country: US (occurrence: US)
  Receive Date: 20180119
  Receipt Date: 20180518
  Transmission Date: 20180711
  Serious: Yes (Life-Threatening, Hospitalization, Other)
  Sender: FDA-Public Use
  Company Number: US-NAPPMUNDI-USA-2018-0142428

PATIENT
  Age: 46 Year
  Sex: Female

DRUGS (2)
  1. LOPERAMIDE [Suspect]
     Active Substance: LOPERAMIDE
     Indication: DRUG WITHDRAWAL SYNDROME
     Dosage: UNK
     Route: 048
  2. OXYCODONE HYDROCHLORIDE (SIMILAR TO NDA 22-272) [Suspect]
     Active Substance: OXYCODONE HYDROCHLORIDE
     Indication: PRODUCT USED FOR UNKNOWN INDICATION
     Dosage: UNK
     Route: 065

REACTIONS (6)
  - Cardiac arrest [Recovering/Resolving]
  - Overdose [Recovering/Resolving]
  - Torsade de pointes [Recovering/Resolving]
  - Drug abuse [Unknown]
  - Electrocardiogram QT prolonged [Recovering/Resolving]
  - Drug withdrawal syndrome [Unknown]
